FAERS Safety Report 9671382 (Version 1)
Quarter: 2013Q4

REPORT INFORMATION
  Report Type: Spontaneous
  Country: PL (occurrence: PL)
  Receive Date: 20131106
  Receipt Date: 20131106
  Transmission Date: 20140711
  Serious: Yes (Death, Hospitalization)
  Sender: FDA-Public Use
  Company Number: PL-TEVA-441481ISR

PATIENT
  Age: 63 Year
  Sex: 0

DRUGS (3)
  1. OLANZAPINE [Suspect]
     Indication: SCHIZOPHRENIA, PARANOID TYPE
     Dosage: NON-COMPLIANCE OF ANTIPSYCHOTIC TREATMENT; STARTED RECEIVING 10MG/DAY AT ADMISSION
     Route: 065
  2. OLANZAPINE [Suspect]
     Indication: SCHIZOPHRENIA, PARANOID TYPE
     Dosage: STARTED 10MG/DAY AT ADMISSION; TITRATED TO 15MG/DAY ON TREATMENT D7
     Route: 065
  3. OLANZAPINE [Suspect]
     Indication: SCHIZOPHRENIA, PARANOID TYPE
     Dosage: 15MG/DAY
     Route: 065

REACTIONS (4)
  - Neuroleptic malignant syndrome [Fatal]
  - Renal failure acute [Fatal]
  - Hyperpyrexia [Fatal]
  - Respiratory failure [Not Recovered/Not Resolved]
